FAERS Safety Report 9187131 (Version 1)
Quarter: 2013Q1

REPORT INFORMATION
  Report Type: Report from Study
  Country: US (occurrence: DK)
  Receive Date: 20130325
  Receipt Date: 20130325
  Transmission Date: 20140127
  Serious: Yes (Other)
  Sender: FDA-Public Use
  Company Number: US-ABBOTT-13P-163-1065992-00

PATIENT
  Age: 36 Year
  Sex: Female

DRUGS (2)
  1. KALETRA [Suspect]
     Indication: ANTIRETROVIRAL THERAPY
     Dosage: COURSE 2, 2 TABLETS DAILY
     Route: 048
     Dates: start: 20071029
  2. EPZICOM [Suspect]
     Indication: ANTIRETROVIRAL THERAPY
     Dosage: COURSE 1, 1 TAB/CAP DAILY
     Route: 048
     Dates: start: 20071029

REACTIONS (1)
  - Abortion spontaneous [Unknown]
